FAERS Safety Report 13510707 (Version 2)
Quarter: 2017Q2

REPORT INFORMATION
  Report Type: Spontaneous
  Country: BR (occurrence: BR)
  Receive Date: 20170503
  Receipt Date: 20170504
  Transmission Date: 20170830
  Serious: Yes (Other)
  Sender: FDA-Public Use
  Company Number: PHHY2017BR063773

PATIENT
  Age: 23 Year
  Sex: Female

DRUGS (1)
  1. CICLOSPORIN [Suspect]
     Active Substance: CYCLOSPORINE
     Indication: APLASTIC ANAEMIA
     Dosage: UNK
     Route: 065

REACTIONS (9)
  - Pancytopenia [Unknown]
  - Tachypnoea [Unknown]
  - Aplastic anaemia [Unknown]
  - Drug ineffective [Unknown]
  - Conjunctival disorder [Unknown]
  - Skin lesion [Unknown]
  - Myelodysplastic syndrome [Unknown]
  - Ecchymosis [Unknown]
  - Product use in unapproved indication [Unknown]
